FAERS Safety Report 4332189-7 (Version None)
Quarter: 2004Q1

REPORT INFORMATION
  Report Type: 
  Country: None (occurrence: None)
  Receive Date: 20040331
  Receipt Date: 20040319
  Transmission Date: 20041129
  Serious: Yes (Hospitalization)
  Sender: FDA-Public Use
  Company Number: 2004PK00535

PATIENT
  Age: 65 Year
  Sex: Male
  Weight: 76 kg

DRUGS (7)
  1. METOPROLOL SUCCINATE [Suspect]
     Indication: CORONARY ARTERY DISEASE
     Dosage: 47.5 MG DAILY PO
     Route: 048
     Dates: start: 19950101
  2. DIGITOXIN INJ [Suspect]
     Indication: CARDIAC FAILURE
     Dosage: 0.07 MG DAILY PO
     Route: 048
     Dates: start: 19970101, end: 20030916
  3. ARELIX ^AVENTIS PHARMA^ [Concomitant]
  4. CORANGIN-SLOW RELEASE [Concomitant]
  5. CRANOC [Concomitant]
  6. FALITHROM [Concomitant]
  7. GOPTEN [Concomitant]

REACTIONS (2)
  - BRADYCARDIA [None]
  - DRUG INTERACTION [None]
